FAERS Safety Report 12164387 (Version 3)
Quarter: 2016Q2

REPORT INFORMATION
  Report Type: Spontaneous
  Country: FR (occurrence: FR)
  Receive Date: 20160309
  Receipt Date: 20160408
  Transmission Date: 20160815
  Serious: Yes (Other)
  Sender: FDA-Public Use
  Company Number: FR-PFIZER INC-2016131924

PATIENT
  Age: 55 Year
  Sex: Male

DRUGS (18)
  1. DOXORUBICIN HCL [Suspect]
     Active Substance: DOXORUBICIN HYDROCHLORIDE
     Dosage: 6 COURSES, CYCLIC
     Route: 042
     Dates: start: 200502
  2. PROGRAF [Suspect]
     Active Substance: TACROLIMUS\TACROLIMUS ANHYDROUS
     Indication: RENAL TRANSPLANT
     Dosage: 1 MG, 2X/DAY
     Route: 048
     Dates: start: 20000621, end: 200501
  3. MABTHERA [Suspect]
     Active Substance: RITUXIMAB
     Indication: NON-HODGKIN^S LYMPHOMA
     Dosage: 6 COURSES, CYCLIC
     Route: 042
     Dates: start: 200404, end: 200409
  4. VINORELBINE [Suspect]
     Active Substance: VINORELBINE\VINORELBINE TARTRATE
     Indication: NON-HODGKIN^S LYMPHOMA
     Dosage: 3 COURSES, CYCLIC
     Route: 042
     Dates: start: 20050728, end: 20051016
  5. SOLUPRED /00016201/ [Suspect]
     Active Substance: PREDNISOLONE
     Indication: RENAL TRANSPLANT
     Dosage: UNK
     Route: 048
  6. MABTHERA [Suspect]
     Active Substance: RITUXIMAB
     Dosage: 6 COURSES, CYCLIC
     Route: 042
     Dates: start: 200502
  7. METHYL-GAG [Suspect]
     Active Substance: MITOGUAZONE
     Indication: NON-HODGKIN^S LYMPHOMA
     Dosage: 3 COURSES, CYCLIC
     Route: 042
     Dates: start: 20050728, end: 20051016
  8. DOXORUBICIN HCL [Suspect]
     Active Substance: DOXORUBICIN HYDROCHLORIDE
     Indication: NON-HODGKIN^S LYMPHOMA
     Dosage: 6 COURSES, CYCLIC
     Route: 042
     Dates: start: 200404, end: 200409
  9. ENDOXAN /00021101/ [Suspect]
     Active Substance: CYCLOPHOSPHAMIDE
     Indication: NON-HODGKIN^S LYMPHOMA
     Dosage: 6 COURSES, CYCLIC
     Route: 042
     Dates: start: 200404, end: 200409
  10. VINCRISTINE SULFATE. [Suspect]
     Active Substance: VINCRISTINE SULFATE
     Indication: NON-HODGKIN^S LYMPHOMA
     Dosage: 6 COURSES, CYCLIC
     Route: 042
     Dates: start: 200404, end: 200409
  11. NEORAL [Suspect]
     Active Substance: CYCLOSPORINE
     Indication: RENAL TRANSPLANT
     Dosage: UNK
     Route: 048
     Dates: start: 1993, end: 20000621
  12. RAPAMUNE [Suspect]
     Active Substance: SIROLIMUS
     Indication: RENAL TRANSPLANT
     Dosage: 2 MG, DAILY
     Route: 048
     Dates: start: 200501
  13. VINCRISTINE SULFATE. [Suspect]
     Active Substance: VINCRISTINE SULFATE
     Dosage: 6 COURSES, CYCLIC
     Route: 042
     Dates: start: 200502
  14. IMUREL /00001501/ [Suspect]
     Active Substance: AZATHIOPRINE SODIUM
     Indication: RENAL TRANSPLANT
     Dosage: UNK
     Route: 048
     Dates: start: 1993, end: 199807
  15. ETOPOPHOS [Suspect]
     Active Substance: ETOPOSIDE PHOSPHATE
     Indication: NON-HODGKIN^S LYMPHOMA
     Dosage: 3 COURSES, CYCLIC
     Route: 042
     Dates: start: 20050728, end: 20051016
  16. ENDOXAN /00021101/ [Suspect]
     Active Substance: CYCLOPHOSPHAMIDE
     Dosage: 6 COURSES, CYCLIC
     Route: 042
     Dates: start: 200502
  17. MABTHERA [Suspect]
     Active Substance: RITUXIMAB
     Dosage: 3 COURSES, CYCLIC
     Route: 042
     Dates: start: 20050727, end: 20051011
  18. HOLOXAN [Suspect]
     Active Substance: IFOSFAMIDE
     Indication: NON-HODGKIN^S LYMPHOMA
     Dosage: 3 COURSES, CYCLIC
     Route: 042
     Dates: start: 20050728, end: 20051016

REACTIONS (1)
  - Basal cell carcinoma [Recovered/Resolved]

NARRATIVE: CASE EVENT DATE: 201602
